FAERS Safety Report 7108158-0 (Version None)
Quarter: 2010Q4

REPORT INFORMATION
  Report Type: 
  Country: None (occurrence: None)
  Receive Date: 20101115
  Receipt Date: 20101115
  Transmission Date: 20110411
  Serious: No
  Sender: FDA-Public Use
  Company Number: None

PATIENT
  Age: 34 Year
  Sex: Female

DRUGS (2)
  1. TOPAMAX [Suspect]
     Indication: MIGRAINE
     Dates: start: 20070501
  2. NAMENDA [Suspect]

REACTIONS (11)
  - ANXIETY [None]
  - BLEPHAROSPASM [None]
  - CONDITION AGGRAVATED [None]
  - DIVORCED [None]
  - MENSTRUATION IRREGULAR [None]
  - MOOD ALTERED [None]
  - PALPITATIONS [None]
  - PERSONALITY CHANGE [None]
  - RAYNAUD'S PHENOMENON [None]
  - STRESS [None]
  - WEIGHT DECREASED [None]
